FAERS Safety Report 5796879-1 (Version None)
Quarter: 2008Q3

REPORT INFORMATION
  Report Type: 
  Country: None (occurrence: None)
  Receive Date: 20080701
  Receipt Date: 20080623
  Transmission Date: 20090109
  Serious: Yes (Other)
  Sender: FDA-Public Use
  Company Number: US-BAYER-200812589BCC

PATIENT
  Age: 17 Year
  Sex: Female

DRUGS (1)
  1. ALEVE [Suspect]
     Indication: HEADACHE
     Route: 048
     Dates: start: 20080623

REACTIONS (2)
  - HAEMATEMESIS [None]
  - VOMITING [None]
